FAERS Safety Report 7115247-3 (Version None)
Quarter: 2010Q4

REPORT INFORMATION
  Report Type: 
  Country: None (occurrence: None)
  Receive Date: 20101122
  Receipt Date: 20101006
  Transmission Date: 20110411
  Serious: No
  Sender: FDA-Public Use
  Company Number: A0879256A

PATIENT
  Age: 13 Year
  Sex: Female

DRUGS (2)
  1. EVOCLIN [Suspect]
     Indication: ECZEMA
     Route: 061
     Dates: start: 20100810, end: 20100901
  2. NO CONCURRENT MEDICATION [Concomitant]

REACTIONS (3)
  - ACNE [None]
  - DRUG INEFFECTIVE [None]
  - ECZEMA [None]
